FAERS Safety Report 16373232 (Version 1)
Quarter: 2019Q2

REPORT INFORMATION
  Report Type: Spontaneous
  Country: US (occurrence: US)
  Receive Date: 20190530
  Receipt Date: 20190530
  Transmission Date: 20190711
  Serious: No
  Sender: FDA-Public Use
  Company Number: US-BAYER-2019-102903

PATIENT

DRUGS (2)
  1. STIVARGA [Suspect]
     Active Substance: REGORAFENIB
     Dosage: 40 MG DAILY
  2. STIVARGA [Suspect]
     Active Substance: REGORAFENIB
     Dosage: 20 MG DAILY

REACTIONS (3)
  - Off label use [None]
  - Wrong technique in product usage process [None]
  - Drug intolerance [None]
